FAERS Safety Report 5866313-1 (Version None)
Quarter: 2008Q3

REPORT INFORMATION
  Report Type: 
  Country: None (occurrence: None)
  Receive Date: 20080901
  Receipt Date: 20080826
  Transmission Date: 20090109
  Serious: Yes (Hospitalization)
  Sender: FDA-Public Use
  Company Number: PHHY2008ES19118

PATIENT
  Age: 80 Year
  Sex: Female

DRUGS (6)
  1. EXELON [Suspect]
     Indication: DEMENTIA ALZHEIMER'S TYPE
     Dosage: 3 MG, UNK
     Route: 048
     Dates: start: 20021118, end: 20071121
  2. ASPIRIN [Suspect]
     Dosage: 100 MG, UNK
     Route: 048
     Dates: start: 20021118, end: 20071121
  3. OMEPRAZOLE [Suspect]
     Dosage: UNK
     Dates: end: 20071121
  4. DEPRAX [Suspect]
     Indication: DEMENTIA ALZHEIMER'S TYPE
     Dosage: 100 MG, UNK
     Route: 048
     Dates: start: 20070615, end: 20071121
  5. MEMANTINE HCL [Suspect]
     Indication: DEMENTIA ALZHEIMER'S TYPE
     Dosage: 10 MG, UNK
     Route: 048
     Dates: start: 20070615, end: 20071121
  6. LANTUS [Suspect]
     Indication: DIABETES MELLITUS
     Dosage: 100 IU/ML, UNK
     Dates: start: 20070917, end: 20071121

REACTIONS (1)
  - HEPATITIS [None]
